FAERS Safety Report 9343771 (Version 1)
Quarter: 2013Q2

REPORT INFORMATION
  Report Type: Report from Study
  Country: CA (occurrence: CA)
  Receive Date: 20130612
  Receipt Date: 20130612
  Transmission Date: 20140414
  Serious: Yes (Other)
  Sender: FDA-Public Use
  Company Number: CA-JNJFOC-20130523178

PATIENT
  Age: 56 Year
  Sex: Male
  Weight: 86.18 kg

DRUGS (1)
  1. SIMPONI [Suspect]
     Indication: RHEUMATOID ARTHRITIS
     Route: 058
     Dates: end: 201211

REACTIONS (3)
  - Skin exfoliation [Unknown]
  - Injection site infection [Unknown]
  - Product quality issue [Unknown]
